FAERS Safety Report 18955549 (Version 3)
Quarter: 2021Q1

REPORT INFORMATION
  Report Type: Spontaneous
  Country: TH (occurrence: TH)
  Receive Date: 20210301
  Receipt Date: 20210317
  Transmission Date: 20210420
  Serious: Yes (Other)
  Sender: FDA-Public Use
  Company Number: TH-PFIZER INC-2021206814

PATIENT
  Age: 84 Year
  Sex: Male

DRUGS (3)
  1. MERONEM [Suspect]
     Active Substance: MEROPENEM
     Indication: SKIN BACTERIAL INFECTION
     Dosage: 1 G
     Route: 041
  2. METRONIDAZOLE. [Concomitant]
     Active Substance: METRONIDAZOLE
     Indication: SKIN BACTERIAL INFECTION
     Dosage: UNK
  3. CLINDAMYCIN PHOSPHATE. [Suspect]
     Active Substance: CLINDAMYCIN PHOSPHATE
     Indication: NECROTISING FASCIITIS
     Dosage: 600 MG, 2X/DAY
     Route: 042

REACTIONS (1)
  - Toxic epidermal necrolysis [Recovering/Resolving]
